FAERS Safety Report 12921044 (Version 1)
Quarter: 2016Q4

REPORT INFORMATION
  Report Type: Spontaneous
  Country: US (occurrence: US)
  Receive Date: 20161102
  Receipt Date: 20161102
  Transmission Date: 20170207
  Serious: Yes (Other)
  Sender: FDA-Public Use
  Company Number: None

PATIENT
  Age: 3 Year
  Sex: Female
  Weight: 11.7 kg

DRUGS (3)
  1. ENAMELAST [Suspect]
     Active Substance: SODIUM FLUORIDE
  2. FLUORIDE [Suspect]
     Active Substance: SODIUM FLUORIDE
     Indication: DENTAL FLUORIDE THERAPY
     Dosage: APPLIED ON TEETH ONE TIME
  3. JARRO-DOPHILUS PROBIOTICS [Concomitant]

REACTIONS (4)
  - Nausea [None]
  - Vomiting [None]
  - Toxicity to various agents [None]
  - Abdominal pain upper [None]

NARRATIVE: CASE EVENT DATE: 20161020
